FAERS Safety Report 7474597-1 (Version None)
Quarter: 2011Q2

REPORT INFORMATION
  Report Type: 
  Country: None (occurrence: None)
  Receive Date: 20110503
  Receipt Date: 20110419
  Transmission Date: 20111010
  Serious: Yes (Hospitalization)
  Sender: FDA-Public Use
  Company Number: 026184

PATIENT
  Sex: Female
  Weight: 48 kg

DRUGS (2)
  1. CIMZIA [Suspect]
     Indication: CROHN'S DISEASE
     Dosage: (400 MG 1X/2 WEEKS SUBCUTANEOUS) ; (400 MG 1X/MONTH SUBCUTANEOUS)
     Route: 058
     Dates: start: 20040605
  2. CIMZIA [Suspect]
     Indication: CROHN'S DISEASE
     Dosage: (400 MG 1X/2 WEEKS SUBCUTANEOUS) ; (400 MG 1X/MONTH SUBCUTANEOUS)
     Route: 058
     Dates: start: 20050102

REACTIONS (21)
  - BLOOD CREATINE INCREASED [None]
  - BLOOD CHLORIDE INCREASED [None]
  - BLOOD UREA DECREASED [None]
  - GASTROENTERITIS VIRAL [None]
  - HYPOTENSION [None]
  - BLOOD POTASSIUM DECREASED [None]
  - POLYCHROMASIA [None]
  - ELLIPTOCYTOSIS [None]
  - PYELONEPHRITIS [None]
  - CONDITION AGGRAVATED [None]
  - BLOOD ALBUMIN DECREASED [None]
  - ANAEMIA [None]
  - DYSPNOEA [None]
  - BLOOD BICARBONATE DECREASED [None]
  - THROMBOCYTOSIS [None]
  - GASTROENTERITIS [None]
  - BLOOD BILIRUBIN UNCONJUGATED INCREASED [None]
  - NEUTROPHILIA [None]
  - CAMPYLOBACTER GASTROENTERITIS [None]
  - GLOMERULAR FILTRATION RATE DECREASED [None]
  - ANISOCYTOSIS [None]
